FAERS Safety Report 8858610 (Version 1)
Quarter: 2012Q4

REPORT INFORMATION
  Report Type: 
  Country: US (occurrence: US)
  Receive Date: 20121024
  Receipt Date: 20121024
  Transmission Date: 20130627
  Serious: Yes (Other)
  Sender: FDA-Public Use
  Company Number: US-GILEAD-2012-0063389

PATIENT
  Sex: Female

DRUGS (1)
  1. LETAIRIS [Suspect]
     Indication: COR PULMONALE CHRONIC
     Dosage: 10 mg, QD
     Route: 048
     Dates: start: 20100606

REACTIONS (6)
  - Thrombosis [Unknown]
  - Epistaxis [Not Recovered/Not Resolved]
  - Malaise [Unknown]
  - Pharyngeal haemorrhage [Unknown]
  - Hereditary haemorrhagic telangiectasia [Unknown]
  - Vomiting [Unknown]
